FAERS Safety Report 10445574 (Version 1)
Quarter: 2014Q3

REPORT INFORMATION
  Report Type: Spontaneous
  Country: US (occurrence: US)
  Receive Date: 20140908
  Receipt Date: 20140908
  Transmission Date: 20150326
  Serious: No
  Sender: FDA-Public Use
  Company Number: US-BRISTOL-MYERS SQUIBB COMPANY-20726121

PATIENT
  Age: 35 Year
  Sex: Male
  Weight: 79.36 kg

DRUGS (2)
  1. ABILIFY [Suspect]
     Active Substance: ARIPIPRAZOLE
     Indication: BIPOLAR DISORDER
     Dates: start: 20140507
  2. ABILIFY [Suspect]
     Active Substance: ARIPIPRAZOLE
     Indication: PERSONALITY DISORDER
     Dates: start: 20140507

REACTIONS (4)
  - Anger [Recovered/Resolved]
  - Eye movement disorder [Recovered/Resolved]
  - Off label use [Unknown]
  - Screaming [Recovered/Resolved]
